FAERS Safety Report 9454688 (Version 1)
Quarter: 2013Q3

REPORT INFORMATION
  Report Type: Spontaneous
  Country: IT (occurrence: IT)
  Receive Date: 20130812
  Receipt Date: 20130812
  Transmission Date: 20140515
  Serious: Yes (Other)
  Sender: FDA-Public Use
  Company Number: PHHY2013IT083378

PATIENT
  Sex: Male

DRUGS (3)
  1. BISOPROLOL [Suspect]
     Dosage: 1 DF, QD
     Route: 048
     Dates: start: 20120517, end: 20130516
  2. CANDESARTAN CILEXETIL [Suspect]
     Dosage: 1 DF, QD
     Route: 048
  3. ACETYLSALICYLIC ACID [Concomitant]

REACTIONS (1)
  - Syncope [Recovering/Resolving]
